FAERS Safety Report 8977497 (Version 2)
Quarter: 2013Q1

REPORT INFORMATION
  Report Type: Spontaneous
  Country: CA (occurrence: CA)
  Receive Date: 20121219
  Receipt Date: 20130124
  Transmission Date: 20140127
  Serious: Yes (Disabling)
  Sender: FDA-Public Use
  Company Number: CA-ASTRAZENECA-2012SE77905

PATIENT
  Age: 84 Year
  Sex: Female

DRUGS (5)
  1. SYMBICORT TURBUHALER [Suspect]
     Indication: ASTHMA
     Dosage: 200/6 MCG, TWO TIMES A DAY
     Route: 055
     Dates: start: 20110112
  2. SYMBICORT TURBUHALER [Suspect]
     Indication: ASTHMA
     Dosage: 200/6 MCG, TWO TIMES A DAY
     Route: 055
  3. VENTOLIN [Concomitant]
     Dosage: PRN
  4. WARFARIN [Concomitant]
  5. LASIX [Concomitant]
     Dosage: PRN

REACTIONS (1)
  - Dyspnoea [Recovered/Resolved]
